FAERS Safety Report 6542562-4 (Version None)
Quarter: 2010Q1

REPORT INFORMATION
  Report Type: 
  Country: None (occurrence: None)
  Receive Date: 20100119
  Receipt Date: 20100107
  Transmission Date: 20100710
  Serious: Yes (Other)
  Sender: FDA-Public Use
  Company Number: CA-WYE-H12975910

PATIENT
  Age: 83 Year
  Sex: Female
  Weight: 36.32 kg

DRUGS (3)
  1. PANTOPRAZOLE [Suspect]
     Indication: GASTROOESOPHAGEAL REFLUX DISEASE
     Route: 048
     Dates: start: 20080601, end: 20090301
  2. VESICARE [Concomitant]
     Dosage: 5 MG, FREQUENCY UNKNOWN
     Route: 048
  3. TYLENOL (CAPLET) [Concomitant]
     Indication: MYALGIA
     Dosage: 1 DOSAGE FORM, FREQUENCY UNKNOWN
     Route: 048

REACTIONS (5)
  - DRUG EFFECT INCREASED [None]
  - FALL [None]
  - FEELING ABNORMAL [None]
  - NECK PAIN [None]
  - PAIN [None]
